FAERS Safety Report 9715640 (Version 1)
Quarter: 2013Q4

REPORT INFORMATION
  Report Type: Spontaneous
  Country: KR (occurrence: KR)
  Receive Date: 20131127
  Receipt Date: 20131127
  Transmission Date: 20140711
  Serious: Yes (Other)
  Sender: FDA-Public Use
  Company Number: KR-JNJFOC-20131110413

PATIENT
  Age: 41 Year
  Sex: Female

DRUGS (2)
  1. DUROGESIC D-TRANS [Suspect]
     Indication: ANALGESIC THERAPY
     Route: 062
  2. VITAMIN B12 [Concomitant]
     Indication: PRODUCT USED FOR UNKNOWN INDICATION
     Route: 065

REACTIONS (2)
  - Hypoventilation [Recovered/Resolved with Sequelae]
  - Intercepted medication error [Unknown]
